FAERS Safety Report 14356411 (Version 1)
Quarter: 2018Q1

REPORT INFORMATION
  Report Type: Spontaneous
  Country: FR (occurrence: FR)
  Receive Date: 20180105
  Receipt Date: 20180105
  Transmission Date: 20180509
  Serious: Yes (Death)
  Sender: FDA-Public Use
  Company Number: FR-MERCK KGAA-2039511

PATIENT
  Age: 76 Year
  Weight: 53 kg

DRUGS (1)
  1. NOVOTHYROX [Suspect]
     Active Substance: LEVOTHYROXINE SODIUM
     Indication: HYPOTHYROIDISM
     Route: 048
     Dates: start: 20110101, end: 20170923

REACTIONS (7)
  - Insomnia [Fatal]
  - Fatigue [Fatal]
  - Vertigo [Fatal]
  - Gait disturbance [Fatal]
  - Weight decreased [Fatal]
  - Anxiety [Fatal]
  - Decreased appetite [Fatal]

NARRATIVE: CASE EVENT DATE: 201703
